FAERS Safety Report 17243367 (Version 2)
Quarter: 2020Q1

REPORT INFORMATION
  Report Type: Spontaneous
  Country: SE (occurrence: SE)
  Receive Date: 20200107
  Receipt Date: 20200113
  Transmission Date: 20200409
  Serious: Yes (Hospitalization)
  Sender: FDA-Public Use
  Company Number: SE-ELI_LILLY_AND_COMPANY-SE202001000115

PATIENT
  Sex: Female

DRUGS (2)
  1. ZYPREXA [Suspect]
     Active Substance: OLANZAPINE
     Indication: DYSPHAGIA
     Dosage: UNK UNK, UNKNOWN
     Route: 065
     Dates: start: 2007, end: 201901
  2. ZYPREXA [Suspect]
     Active Substance: OLANZAPINE
     Indication: DYSPHAGIA
     Dosage: UNK, UNKNOWN
     Route: 030
     Dates: start: 201903

REACTIONS (8)
  - Food craving [Unknown]
  - Fatigue [Unknown]
  - Respiratory distress [Recovered/Resolved]
  - Palpitations [Unknown]
  - Withdrawal syndrome [Unknown]
  - Dyspnoea [Recovered/Resolved]
  - Off label use [Unknown]
  - Heart rate increased [Unknown]

NARRATIVE: CASE EVENT DATE: 2007
